FAERS Safety Report 24011415 (Version 1)
Quarter: 2024Q2

REPORT INFORMATION
  Report Type: Report from Study
  Country: DK (occurrence: DK)
  Receive Date: 20240625
  Receipt Date: 20240625
  Transmission Date: 20240716
  Serious: Yes (Other)
  Sender: FDA-Public Use
  Company Number: DK-JNJFOC-20230430584

PATIENT
  Age: 15 Year
  Sex: Female

DRUGS (4)
  1. REMICADE [Suspect]
     Active Substance: INFLIXIMAB
     Indication: Crohn^s disease
     Route: 058
     Dates: start: 20120105, end: 20120525
  2. REMICADE [Suspect]
     Active Substance: INFLIXIMAB
     Route: 058
     Dates: start: 20120702, end: 20130107
  3. REMICADE [Suspect]
     Active Substance: INFLIXIMAB
     Route: 058
     Dates: start: 20130125, end: 20130607
  4. REMICADE [Suspect]
     Active Substance: INFLIXIMAB
     Route: 058
     Dates: start: 20130726, end: 20140217

REACTIONS (2)
  - Colitis [Recovered/Resolved]
  - Gastroenteritis norovirus [Recovered/Resolved]

NARRATIVE: CASE EVENT DATE: 20150213
